FAERS Safety Report 21756184 (Version 6)
Quarter: 2023Q2

REPORT INFORMATION
  Report Type: Report from Study
  Country: US (occurrence: US)
  Receive Date: 20221220
  Receipt Date: 20230626
  Transmission Date: 20230721
  Serious: Yes (Hospitalization)
  Sender: FDA-Public Use
  Company Number: US-TAKEDA-2022TUS076946

PATIENT
  Age: 54 Year
  Sex: Female

DRUGS (32)
  1. TEDUGLUTIDE [Suspect]
     Active Substance: TEDUGLUTIDE
     Indication: Short-bowel syndrome
     Dosage: 0.33 MILLILITER, QD
     Route: 058
     Dates: start: 20220913
  2. TEDUGLUTIDE [Suspect]
     Active Substance: TEDUGLUTIDE
     Indication: Short-bowel syndrome
     Dosage: 0.33 MILLILITER, QD
     Route: 058
     Dates: start: 20220913
  3. TEDUGLUTIDE [Suspect]
     Active Substance: TEDUGLUTIDE
     Indication: Short-bowel syndrome
     Dosage: 0.33 MILLILITER, QD
     Route: 058
     Dates: start: 20220913
  4. TEDUGLUTIDE [Suspect]
     Active Substance: TEDUGLUTIDE
     Indication: Short-bowel syndrome
     Dosage: 0.33 MILLILITER, QD
     Route: 058
     Dates: start: 20220913
  5. TEDUGLUTIDE [Suspect]
     Active Substance: TEDUGLUTIDE
     Dosage: 0.33 MILLILITER, QD
     Route: 058
     Dates: start: 20220918
  6. TEDUGLUTIDE [Suspect]
     Active Substance: TEDUGLUTIDE
     Dosage: 0.33 MILLILITER, QD
     Route: 058
     Dates: start: 20220918
  7. TEDUGLUTIDE [Suspect]
     Active Substance: TEDUGLUTIDE
     Dosage: 0.33 MILLILITER, QD
     Route: 058
     Dates: start: 20220918
  8. TEDUGLUTIDE [Suspect]
     Active Substance: TEDUGLUTIDE
     Dosage: 0.33 MILLILITER, QD
     Route: 058
     Dates: start: 20220918
  9. TEDUGLUTIDE [Suspect]
     Active Substance: TEDUGLUTIDE
     Dosage: 0.33 MILLIGRAM, QD
     Route: 058
     Dates: start: 20220920
  10. TEDUGLUTIDE [Suspect]
     Active Substance: TEDUGLUTIDE
     Dosage: 0.33 MILLIGRAM, QD
     Route: 058
     Dates: start: 20220920
  11. TEDUGLUTIDE [Suspect]
     Active Substance: TEDUGLUTIDE
     Dosage: 0.33 MILLIGRAM, QD
     Route: 058
     Dates: start: 20220920
  12. TEDUGLUTIDE [Suspect]
     Active Substance: TEDUGLUTIDE
     Dosage: 0.33 MILLIGRAM, QD
     Route: 058
     Dates: start: 20220920
  13. TEDUGLUTIDE [Suspect]
     Active Substance: TEDUGLUTIDE
     Dosage: 0.33 MILLIGRAM, QD
     Route: 058
     Dates: start: 20220922
  14. TEDUGLUTIDE [Suspect]
     Active Substance: TEDUGLUTIDE
     Dosage: 0.33 MILLIGRAM, QD
     Route: 058
     Dates: start: 20220922
  15. TEDUGLUTIDE [Suspect]
     Active Substance: TEDUGLUTIDE
     Dosage: 0.33 MILLIGRAM, QD
     Route: 058
     Dates: start: 20220922
  16. TEDUGLUTIDE [Suspect]
     Active Substance: TEDUGLUTIDE
     Dosage: 0.33 MILLIGRAM, QD
     Route: 058
     Dates: start: 20220922
  17. TEDUGLUTIDE [Suspect]
     Active Substance: TEDUGLUTIDE
     Dosage: 0.33 MILLILITER, QD
     Route: 058
     Dates: start: 202209
  18. TEDUGLUTIDE [Suspect]
     Active Substance: TEDUGLUTIDE
     Dosage: 0.33 MILLILITER, QD
     Route: 058
     Dates: start: 202209
  19. TEDUGLUTIDE [Suspect]
     Active Substance: TEDUGLUTIDE
     Dosage: 0.33 MILLILITER, QD
     Route: 058
     Dates: start: 202209
  20. TEDUGLUTIDE [Suspect]
     Active Substance: TEDUGLUTIDE
     Dosage: 0.33 MILLILITER, QD
     Route: 058
     Dates: start: 202209
  21. TEDUGLUTIDE [Suspect]
     Active Substance: TEDUGLUTIDE
     Dosage: UNK UNK, QD
     Route: 058
  22. TEDUGLUTIDE [Suspect]
     Active Substance: TEDUGLUTIDE
     Dosage: UNK UNK, QD
     Route: 058
  23. TEDUGLUTIDE [Suspect]
     Active Substance: TEDUGLUTIDE
     Dosage: UNK UNK, QD
     Route: 058
  24. TEDUGLUTIDE [Suspect]
     Active Substance: TEDUGLUTIDE
     Dosage: UNK UNK, QD
     Route: 058
  25. TEDUGLUTIDE [Suspect]
     Active Substance: TEDUGLUTIDE
     Dosage: 3.3 MILLIGRAM, QD
     Route: 058
  26. TEDUGLUTIDE [Suspect]
     Active Substance: TEDUGLUTIDE
     Dosage: 3.3 MILLIGRAM, QD
     Route: 058
  27. TEDUGLUTIDE [Suspect]
     Active Substance: TEDUGLUTIDE
     Dosage: 3.3 MILLIGRAM, QD
     Route: 058
  28. TEDUGLUTIDE [Suspect]
     Active Substance: TEDUGLUTIDE
     Dosage: 3.3 MILLIGRAM, QD
     Route: 058
  29. TEDUGLUTIDE [Suspect]
     Active Substance: TEDUGLUTIDE
     Dosage: 0.33 MILLILITER, QD
     Route: 058
  30. TEDUGLUTIDE [Suspect]
     Active Substance: TEDUGLUTIDE
     Dosage: 0.33 MILLILITER, QD
     Route: 058
  31. TEDUGLUTIDE [Suspect]
     Active Substance: TEDUGLUTIDE
     Dosage: 0.33 MILLILITER, QD
     Route: 058
  32. TEDUGLUTIDE [Suspect]
     Active Substance: TEDUGLUTIDE
     Dosage: 0.33 MILLILITER, QD
     Route: 058

REACTIONS (13)
  - Constipation [Recovered/Resolved]
  - Obstruction [Recovered/Resolved]
  - Adhesion [Unknown]
  - Abscess limb [Unknown]
  - Abdominal pain upper [Unknown]
  - Abdominal pain [Unknown]
  - Weight decreased [Unknown]
  - Fall [Unknown]
  - Abdominal hernia [Unknown]
  - Umbilical discharge [Unknown]
  - Procedural pain [Unknown]
  - Diarrhoea [Unknown]
  - Vomiting [Unknown]

NARRATIVE: CASE EVENT DATE: 20221017
